FAERS Safety Report 11067794 (Version 1)
Quarter: 2015Q2

REPORT INFORMATION
  Report Type: Spontaneous
  Country: US (occurrence: None)
  Receive Date: 20150424
  Receipt Date: 20150424
  Transmission Date: 20150821
  Serious: Yes (Other)
  Sender: FDA-Public Use
  Company Number: None

PATIENT
  Age: 79 Year
  Sex: Male
  Weight: 68.04 kg

DRUGS (9)
  1. AMLODIPINE [Concomitant]
     Active Substance: AMLODIPINE BESYLATE
  2. ENALAPRIL [Concomitant]
     Active Substance: ENALAPRIL
  3. RANITIDIDINE [Concomitant]
  4. BENZONATATE. [Suspect]
     Active Substance: BENZONATATE
     Indication: COUGH
     Dosage: 1 TO 2 CAPSULES 3X ADAY BY MOUTH
     Route: 048
     Dates: start: 20150327, end: 20150328
  5. METOPROLOL [Concomitant]
     Active Substance: METOPROLOL
  6. ASPIRIN. [Concomitant]
     Active Substance: ASPIRIN
  7. SIMVASTATIN. [Concomitant]
     Active Substance: SIMVASTATIN
  8. ALLOPURINOL. [Concomitant]
     Active Substance: ALLOPURINOL
  9. HYDROCHLOROTHIAZIDE. [Concomitant]
     Active Substance: HYDROCHLOROTHIAZIDE

REACTIONS (5)
  - Somnolence [None]
  - Fall [None]
  - Activities of daily living impaired [None]
  - Musculoskeletal stiffness [None]
  - Movement disorder [None]

NARRATIVE: CASE EVENT DATE: 20150328
